FAERS Safety Report 11033131 (Version 2)
Quarter: 2015Q2

REPORT INFORMATION
  Report Type: Spontaneous
  Country: US (occurrence: US)
  Receive Date: 20150415
  Receipt Date: 20150504
  Transmission Date: 20150821
  Serious: Yes (Other)
  Sender: FDA-Public Use
  Company Number: US-PFIZER INC-2015125030

PATIENT
  Sex: Female

DRUGS (2)
  1. IBRUTINIB [Interacting]
     Active Substance: IBRUTINIB
     Dosage: UNK
  2. VENLAFAXINE HCL [Suspect]
     Active Substance: VENLAFAXINE HYDROCHLORIDE
     Indication: DEPRESSION
     Dosage: UNK

REACTIONS (5)
  - Lymphoma [Unknown]
  - Haemorrhagic diathesis [Unknown]
  - Condition aggravated [Unknown]
  - Drug interaction [Unknown]
  - Depression [Unknown]
